FAERS Safety Report 5180499-6 (Version None)
Quarter: 2006Q4

REPORT INFORMATION
  Report Type: 
  Country: None (occurrence: None)
  Receive Date: 20061219
  Receipt Date: 20060918
  Transmission Date: 20070319
  Serious: No
  Sender: FDA-Public Use
  Company Number: US-AMGEN-KDL194038

PATIENT
  Sex: Female

DRUGS (3)
  1. ENBREL [Suspect]
     Indication: RHEUMATOID ARTHRITIS
     Route: 058
     Dates: start: 19990526
  2. ENBREL [Suspect]
     Indication: PSORIASIS
  3. PLAQUENIL [Concomitant]
     Route: 048

REACTIONS (4)
  - CONDITION AGGRAVATED [None]
  - INJECTION SITE BRUISING [None]
  - PUSTULAR PSORIASIS [None]
  - RHEUMATOID ARTHRITIS [None]
